FAERS Safety Report 19065888 (Version 1)
Quarter: 2021Q1

REPORT INFORMATION
  Report Type: Spontaneous
  Country: IT (occurrence: IT)
  Receive Date: 20210327
  Receipt Date: 20210327
  Transmission Date: 20210420
  Serious: Yes (Hospitalization, Other)
  Sender: FDA-Public Use
  Company Number: NVSC2021IT061686

PATIENT
  Sex: Female

DRUGS (4)
  1. LEVETIRACETAM. [Suspect]
     Active Substance: LEVETIRACETAM
     Dosage: 2000 MG, QD (1000 MILLIGRAM, 2X/DAY (BID)
     Route: 065
     Dates: start: 2019, end: 2019
  2. LEVETIRACETAM. [Suspect]
     Active Substance: LEVETIRACETAM
     Dosage: 1000 MG, QD (500 MILLIGRAM, 2X/DAY (BID)
     Route: 065
  3. LEVETIRACETAM. [Suspect]
     Active Substance: LEVETIRACETAM
     Indication: EPILEPSY
     Dosage: 500 MG DAILY
     Route: 065
     Dates: start: 2019, end: 2019
  4. LEVETIRACETAM. [Suspect]
     Active Substance: LEVETIRACETAM
     Dosage: UNK (500 MG IN THE MORNING AND 1000 MG IN THE EVENING)
     Route: 065
     Dates: start: 2019, end: 2019

REACTIONS (9)
  - Seizure [Not Recovered/Not Resolved]
  - Mood swings [Unknown]
  - Memory impairment [Not Recovered/Not Resolved]
  - Personality change [Unknown]
  - Product use issue [Unknown]
  - Feeling abnormal [Not Recovered/Not Resolved]
  - Tremor [Unknown]
  - Crying [Not Recovered/Not Resolved]
  - Agitation [Not Recovered/Not Resolved]

NARRATIVE: CASE EVENT DATE: 2019
